FAERS Safety Report 11850242 (Version 1)
Quarter: 2015Q4

REPORT INFORMATION
  Report Type: Spontaneous
  Country: None (occurrence: US)
  Receive Date: 20151218
  Receipt Date: 20151218
  Transmission Date: 20160305
  Serious: No
  Sender: FDA-Public Use
  Company Number: US-WATSON-2015-11118

PATIENT

DRUGS (1)
  1. GELNIQUE [Suspect]
     Active Substance: OXYBUTYNIN\OXYBUTYNIN CHLORIDE
     Indication: HYPERTONIC BLADDER
     Dosage: 3 PUMPS
     Route: 061

REACTIONS (1)
  - Application site pruritus [Recovering/Resolving]
